FAERS Safety Report 19470093 (Version 1)
Quarter: 2021Q2

REPORT INFORMATION
  Report Type: Spontaneous
  Country: US (occurrence: US)
  Receive Date: 20210628
  Receipt Date: 20210628
  Transmission Date: 20210717
  Serious: No
  Sender: FDA-Public Use
  Company Number: US-SAREPTA THERAPEUTICS INC.-SRP2021-001405

PATIENT
  Age: 16 Year
  Sex: Male
  Weight: 65.76 kg

DRUGS (8)
  1. CALCITOL [Concomitant]
     Indication: VITAMIN SUPPLEMENTATION
     Dosage: 0.5 MICROGRAM, BID
     Dates: start: 2017
  2. CALCIUM CARBONATE. [Concomitant]
     Active Substance: CALCIUM CARBONATE
     Indication: MINERAL SUPPLEMENTATION
     Dosage: 1250 MILLIGRAM, BID
  3. VYONDYS 53 [Suspect]
     Active Substance: GOLODIRSEN
     Dosage: 1800 MILLIGRAM, WEEKLY
     Route: 042
     Dates: start: 20210429
  4. VYONDYS 53 [Suspect]
     Active Substance: GOLODIRSEN
     Indication: DUCHENNE MUSCULAR DYSTROPHY
     Dosage: 1800 MILLIGRAM, WEEKLY
     Route: 042
     Dates: start: 20200915, end: 20210416
  5. CHOLECALCIFEROL [Concomitant]
     Active Substance: CHOLECALCIFEROL
     Indication: VITAMIN SUPPLEMENTATION
     Dosage: 1000 U, QD
     Dates: start: 2017
  6. CONCERTA [Concomitant]
     Active Substance: METHYLPHENIDATE HYDROCHLORIDE
     Indication: PRODUCT USED FOR UNKNOWN INDICATION
     Dosage: 26 MILLIGRAM, QD
  7. LISINOPRIL. [Concomitant]
     Active Substance: LISINOPRIL
     Indication: ENZYME INHIBITION
     Dosage: UNK
     Dates: start: 20200102
  8. IBUPROFEN. [Concomitant]
     Active Substance: IBUPROFEN
     Indication: ANTIINFLAMMATORY THERAPY
     Dosage: 400 MILLIGRAM,Q6HRS, PRN

REACTIONS (2)
  - Exposure to SARS-CoV-2 [Unknown]
  - Product dose omission issue [Recovered/Resolved]

NARRATIVE: CASE EVENT DATE: 20210423
